FAERS Safety Report 5285707-9 (Version None)
Quarter: 2007Q1

REPORT INFORMATION
  Report Type: 
  Country: None (occurrence: None)
  Receive Date: 20070126
  Receipt Date: 20061129
  Transmission Date: 20070707
  Serious: Yes (Death)
  Sender: FDA-Public Use
  Company Number: 2005CT000262

PATIENT
  Age: 73 Year
  Sex: Male
  Weight: 104.3273 kg

DRUGS (14)
  1. VENTAVIS [Suspect]
     Indication: PULMONARY HYPERTENSION
     Dosage: 5 UG;6XD;INH
     Route: 055
     Dates: start: 20050929
  2. IMDUR [Concomitant]
  3. ZAROXOLYN [Concomitant]
  4. ALDACTONE [Concomitant]
  5. PLAVIX [Concomitant]
  6. TOPROL-XL [Concomitant]
  7. K-DUR 10 [Concomitant]
  8. ZOLOFT [Concomitant]
  9. FOLIC ACID [Concomitant]
  10. PREVACID [Concomitant]
  11. SIMVASTATIN [Concomitant]
  12. CARDIZEM [Concomitant]
  13. TRACLEER [Concomitant]
  14. WARFARIN SODIUM [Concomitant]

REACTIONS (2)
  - CARDIAC FAILURE [None]
  - PULMONARY HYPERTENSION [None]
